FAERS Safety Report 5451683-9 (Version None)
Quarter: 2007Q3

REPORT INFORMATION
  Report Type: 
  Country: None (occurrence: None)
  Receive Date: 20070913
  Receipt Date: 20070906
  Transmission Date: 20080115
  Serious: Yes (Other)
  Sender: FDA-Public Use
  Company Number: US-PFIZER INC-2007074696

PATIENT
  Sex: Male
  Weight: 68 kg

DRUGS (4)
  1. LIPITOR [Suspect]
     Indication: BLOOD CHOLESTEROL INCREASED
     Dates: start: 20070101, end: 20070830
  2. NORVASC [Suspect]
     Indication: HYPERTENSION
     Dates: start: 20070706, end: 20070830
  3. ATIVAN [Concomitant]
  4. SIMETHICONE [Concomitant]

REACTIONS (9)
  - ARTHRALGIA [None]
  - BODY HEIGHT DECREASED [None]
  - BURNING SENSATION [None]
  - CONSTIPATION [None]
  - GAIT DISTURBANCE [None]
  - HYPERTENSION [None]
  - INSOMNIA [None]
  - JOINT SWELLING [None]
  - MYALGIA [None]
